FAERS Safety Report 17027446 (Version 1)
Quarter: 2019Q4

REPORT INFORMATION
  Report Type: Spontaneous
  Country: CA (occurrence: CA)
  Receive Date: 20191113
  Receipt Date: 20191113
  Transmission Date: 20200122
  Serious: Yes (Life-Threatening, Hospitalization, Other)
  Sender: FDA-Public Use
  Company Number: CA-BAYER-2019-199768

PATIENT
  Age: 46 Year
  Sex: Female

DRUGS (2)
  1. MIRENA [Suspect]
     Active Substance: LEVONORGESTREL
     Indication: MENORRHAGIA
  2. MIRENA [Suspect]
     Active Substance: LEVONORGESTREL
     Indication: MENORRHAGIA
     Dosage: 20 MCG/24HR, CONT
     Route: 015

REACTIONS (9)
  - Chest pain [Recovering/Resolving]
  - Blindness [Recovering/Resolving]
  - Subclavian artery thrombosis [Recovering/Resolving]
  - Intra-uterine contraceptive device removal [Recovering/Resolving]
  - Sensory loss [Recovering/Resolving]
  - Embedded device [Recovering/Resolving]
  - Pain [Recovering/Resolving]
  - Transient ischaemic attack [Recovering/Resolving]
  - Artery dissection [Recovering/Resolving]
